FAERS Safety Report 19462538 (Version 1)
Quarter: 2021Q2

REPORT INFORMATION
  Report Type: Spontaneous
  Country: JP (occurrence: JP)
  Receive Date: 20210625
  Receipt Date: 20210625
  Transmission Date: 20210717
  Serious: Yes (Other)
  Sender: FDA-Public Use
  Company Number: JP-JNJFOC-20210648466

PATIENT
  Age: 7 Decade
  Sex: Female

DRUGS (3)
  1. UPTRAVI [Suspect]
     Active Substance: SELEXIPAG
     Indication: PRODUCT USED FOR UNKNOWN INDICATION
     Route: 048
  2. ADCIRCA [Concomitant]
     Active Substance: TADALAFIL
     Route: 065
  3. VOLIBRIS [Concomitant]
     Active Substance: AMBRISENTAN
     Route: 065

REACTIONS (1)
  - Large intestinal haemorrhage [Unknown]
